FAERS Safety Report 15505401 (Version 2)
Quarter: 2018Q4

REPORT INFORMATION
  Report Type: Spontaneous
  Country: US (occurrence: US)
  Receive Date: 20181016
  Receipt Date: 20181211
  Transmission Date: 20190205
  Serious: Yes (Hospitalization, Other)
  Sender: FDA-Public Use
  Company Number: US-AMGEN-USASP2018142344

PATIENT
  Age: 86 Year
  Sex: Male

DRUGS (1)
  1. REPATHA [Suspect]
     Active Substance: EVOLOCUMAB
     Indication: BLOOD CHOLESTEROL INCREASED
     Dosage: UNK
     Route: 065

REACTIONS (7)
  - Fall [Unknown]
  - Hernia [Unknown]
  - Knee arthroplasty [Unknown]
  - Wrong technique in product usage process [Unknown]
  - Device failure [Unknown]
  - Catheterisation cardiac [Unknown]
  - Mobility decreased [Unknown]
